FAERS Safety Report 8077936-6 (Version None)
Quarter: 2012Q1

REPORT INFORMATION
  Report Type: 
  Country: None (occurrence: None)
  Receive Date: 20120127
  Receipt Date: 20110101
  Transmission Date: 20120608
  Serious: No
  Sender: FDA-Public Use
  Company Number: US-ABBOTT-11P-163-0695409-00

PATIENT
  Sex: Female

DRUGS (5)
  1. ZIGRID [Concomitant]
     Indication: GASTROOESOPHAGEAL REFLUX DISEASE
  2. OMNICEF [Suspect]
     Indication: SINUSITIS
     Dates: start: 20101201, end: 20101201
  3. HUMIRA [Suspect]
     Indication: PSORIASIS
     Route: 058
     Dates: end: 20101201
  4. ZANTAC [Concomitant]
     Indication: GASTROOESOPHAGEAL REFLUX DISEASE
  5. ZANTAC [Concomitant]
     Indication: GASTRIC DISORDER

REACTIONS (9)
  - DRUG INEFFECTIVE [None]
  - ADNEXA UTERI PAIN [None]
  - SINUSITIS [None]
  - SINUS HEADACHE [None]
  - MUSCLE DISORDER [None]
  - MUSCULAR WEAKNESS [None]
  - HEADACHE [None]
  - OVARIAN CYST [None]
  - MEMORY IMPAIRMENT [None]
